FAERS Safety Report 24588954 (Version 1)
Quarter: 2024Q4

REPORT INFORMATION
  Report Type: Spontaneous
  Country: BG (occurrence: BG)
  Receive Date: 20241107
  Receipt Date: 20241107
  Transmission Date: 20250114
  Serious: Yes (Other)
  Sender: SANOFI AVENTIS
  Company Number: BG-SA-2024SA316122

PATIENT
  Age: 69 Year
  Sex: Female

DRUGS (3)
  1. ISATUXIMAB [Suspect]
     Active Substance: ISATUXIMAB
     Indication: Plasma cell myeloma refractory
     Dosage: 10 MG/KG, QD
     Route: 042
     Dates: start: 202309, end: 202407
  2. POMALIDOMIDE [Concomitant]
     Active Substance: POMALIDOMIDE
     Indication: Plasma cell myeloma
     Dosage: UNK
     Route: 048
     Dates: start: 202309
  3. DEXAMETHASONE [Concomitant]
     Active Substance: DEXAMETHASONE
     Indication: Hypersensitivity
     Dosage: UNK
     Route: 048
     Dates: start: 202309

REACTIONS (6)
  - Bone marrow infiltration [Unknown]
  - Neutropenia [Recovered/Resolved]
  - Bone lesion [Unknown]
  - Blood creatinine increased [Unknown]
  - Paraproteinaemia [Unknown]
  - Disease progression [Recovering/Resolving]
